FAERS Safety Report 24058583 (Version 1)
Quarter: 2024Q3

REPORT INFORMATION
  Report Type: Spontaneous
  Country: SE (occurrence: SE)
  Receive Date: 20240708
  Receipt Date: 20240708
  Transmission Date: 20241016
  Serious: Yes (Other)
  Sender: NOVO NORDISK
  Company Number: None

PATIENT
  Age: 41 Year
  Sex: Male
  Weight: 109 kg

DRUGS (2)
  1. BISOPROLOL MEDICAL VALLEY [Concomitant]
     Dosage: 2.5 MG, QD (1 TIMES/DAY)
     Route: 048
     Dates: start: 20231204
  2. OZEMPIC [Suspect]
     Active Substance: SEMAGLUTIDE
     Indication: Product used for unknown indication
     Dosage: 2 MG
     Route: 058
     Dates: start: 20230901, end: 20240312

REACTIONS (3)
  - Atrioventricular block second degree [Recovering/Resolving]
  - Ventricular extrasystoles [Recovering/Resolving]
  - Heart rate abnormal [Recovering/Resolving]

NARRATIVE: CASE EVENT DATE: 20230915
